APPROVED DRUG PRODUCT: CASPOFUNGIN ACETATE
Active Ingredient: CASPOFUNGIN ACETATE
Strength: 50MG/VIAL
Dosage Form/Route: POWDER;INTRAVENOUS
Application: A207092 | Product #001 | TE Code: AP
Applicant: GLAND PHARMA LTD
Approved: Sep 29, 2017 | RLD: No | RS: No | Type: RX